FAERS Safety Report 4316682-9 (Version None)
Quarter: 2004Q1

REPORT INFORMATION
  Report Type: 
  Country: None (occurrence: None)
  Receive Date: 20040311
  Receipt Date: 20040301
  Transmission Date: 20041129
  Serious: Yes (Hospitalization, Other)
  Sender: FDA-Public Use
  Company Number: 2004201728GB

PATIENT
  Age: 50 Year
  Sex: Female
  Weight: 101.8 kg

DRUGS (1)
  1. GENOTROPIN [Suspect]
     Indication: HYPOPITUITARISM
     Dosage: 0.6 MG, QD, UNK
     Dates: start: 20020416, end: 20040225

REACTIONS (1)
  - INTESTINAL POLYP [None]
